FAERS Safety Report 16360746 (Version 2)
Quarter: 2019Q2

REPORT INFORMATION
  Report Type: Spontaneous
  Country: FR (occurrence: FR)
  Receive Date: 20190528
  Receipt Date: 20190612
  Transmission Date: 20190711
  Serious: Yes (Hospitalization)
  Sender: FDA-Public Use
  Company Number: FR-ACCORD-129333

PATIENT
  Age: 75 Year
  Sex: Female

DRUGS (5)
  1. IRINOTECAN [Suspect]
     Active Substance: IRINOTECAN
     Indication: ADENOCARCINOMA OF COLON
     Route: 042
     Dates: start: 20190115, end: 20190312
  2. ATROPINE. [Suspect]
     Active Substance: ATROPINE
     Indication: PREMEDICATION
     Route: 042
     Dates: start: 20190115, end: 20190312
  3. CALCIUM LEVOFOLINATE [Suspect]
     Active Substance: LEVOLEUCOVORIN CALCIUM
     Indication: ADENOCARCINOMA OF COLON
     Route: 042
     Dates: start: 20190115, end: 20190312
  4. ZALTRAP [Suspect]
     Active Substance: ZIV-AFLIBERCEPT
     Indication: ADENOCARCINOMA OF COLON
     Route: 042
     Dates: start: 20190115, end: 20190312
  5. FLUOROURACIL. [Suspect]
     Active Substance: FLUOROURACIL
     Indication: ADENOCARCINOMA OF COLON
     Dosage: 4050 MILLIGRAMES/2 SEMAINES
     Route: 042
     Dates: start: 20190115, end: 20190312

REACTIONS (3)
  - Dysphonia [Unknown]
  - Haemorrhagic stroke [Unknown]
  - Hypertension [Unknown]

NARRATIVE: CASE EVENT DATE: 201902
